FAERS Safety Report 6764627-4 (Version None)
Quarter: 2010Q2

REPORT INFORMATION
  Report Type: 
  Country: None (occurrence: None)
  Receive Date: 20100609
  Receipt Date: 20100302
  Transmission Date: 20101027
  Serious: No
  Sender: FDA-Public Use
  Company Number: 2010005471

PATIENT
  Age: 16 Month
  Sex: Male
  Weight: 10.8863 kg

DRUGS (1)
  1. CHILDREN'S ZYRTEC ALLERGY [Suspect]
     Indication: HYPERSENSITIVITY
     Dosage: HALF A TEASPOON ONCE, ORAL
     Route: 048
     Dates: start: 20100302

REACTIONS (1)
  - WRONG DRUG ADMINISTERED [None]
